FAERS Safety Report 21579687 (Version 1)
Quarter: 2022Q4

REPORT INFORMATION
  Report Type: Spontaneous
  Country: US (occurrence: None)
  Receive Date: 20221110
  Receipt Date: 20221110
  Transmission Date: 20230112
  Serious: Yes (Death, Hospitalization)
  Sender: FDA-Public Use
  Company Number: None

PATIENT
  Age: 72 Year
  Sex: Female
  Weight: 82.8 kg

DRUGS (2)
  1. WARFARIN [Suspect]
     Active Substance: WARFARIN
     Indication: Cerebrovascular accident
     Dosage: OTHER FREQUENCY : MWF, 2.5MG TTHSSUN;?
     Route: 048
     Dates: start: 20211001, end: 20220903
  2. ENOXAPARIN [Concomitant]
     Active Substance: ENOXAPARIN

REACTIONS (13)
  - Asthenia [None]
  - Gait disturbance [None]
  - Acute myocardial infarction [None]
  - Cerebellar haematoma [None]
  - Intraventricular haemorrhage [None]
  - Brain herniation [None]
  - International normalised ratio increased [None]
  - Cerebellar haemorrhage [None]
  - Hydrocephalus [None]
  - Resuscitation [None]
  - Pulse absent [None]
  - Ischaemic cerebral infarction [None]
  - Pupil fixed [None]

NARRATIVE: CASE EVENT DATE: 20220903
